FAERS Safety Report 4451274-2 (Version None)
Quarter: 2004Q3

REPORT INFORMATION
  Report Type: 
  Country: None (occurrence: None)
  Receive Date: 20040913
  Receipt Date: 20040712
  Transmission Date: 20050211
  Serious: No
  Sender: FDA-Public Use
  Company Number: 2004-BP-05575BP

PATIENT

DRUGS (8)
  1. SPIRIVA [Suspect]
     Indication: PREOPERATIVE CARE
     Dosage: 18 MCG (18 MCG), IH
     Route: 055
     Dates: start: 20040709
  2. ADVAIR (SERETIDE MITE) [Concomitant]
  3. NORVASC [Concomitant]
  4. CAPTOPRIL [Concomitant]
  5. DIAZIDE (GLICLAZIDE) [Concomitant]
  6. XALATAN [Concomitant]
  7. OITOPIC [Concomitant]
  8. ALPHAGAN P [Concomitant]

REACTIONS (2)
  - AGEUSIA [None]
  - DRUG INEFFECTIVE [None]
